FAERS Safety Report 24629105 (Version 1)
Quarter: 2024Q4

REPORT INFORMATION
  Report Type: Spontaneous
  Country: FR (occurrence: FR)
  Receive Date: 20241118
  Receipt Date: 20241118
  Transmission Date: 20250114
  Serious: Yes (Hospitalization)
  Sender: CHEPLAPHARM
  Company Number: None

PATIENT
  Age: 85 Year
  Sex: Male

DRUGS (7)
  1. OLANZAPINE [Suspect]
     Active Substance: OLANZAPINE
     Indication: Wrong patient
     Route: 048
     Dates: start: 20241017, end: 20241017
  2. MIANSERIN HYDROCHLORIDE [Suspect]
     Active Substance: MIANSERIN HYDROCHLORIDE
     Indication: Wrong patient
     Route: 048
     Dates: start: 20241017, end: 20241017
  3. VALPROATE SODIUM [Suspect]
     Active Substance: VALPROATE SODIUM
     Indication: Wrong patient
     Route: 048
     Dates: start: 20241017, end: 20241017
  4. ALPRAZOLAM [Concomitant]
     Active Substance: ALPRAZOLAM
  5. VALPROMIDE [Concomitant]
     Active Substance: VALPROMIDE
  6. RISPERDAL [Concomitant]
     Active Substance: RISPERIDONE
  7. LORMETAZEPAM [Concomitant]
     Active Substance: LORMETAZEPAM

REACTIONS (3)
  - Fall [Recovered/Resolved]
  - Wrong patient [Recovered/Resolved]
  - Somnolence [Recovered/Resolved]

NARRATIVE: CASE EVENT DATE: 20241017
